FAERS Safety Report 7711846-6 (Version None)
Quarter: 2011Q3

REPORT INFORMATION
  Report Type: 
  Country: None (occurrence: None)
  Receive Date: 20110822
  Receipt Date: 20110804
  Transmission Date: 20111222
  Serious: Yes (Other)
  Sender: FDA-Public Use
  Company Number: 2011MA011373

PATIENT
  Age: 39 Year
  Sex: Female

DRUGS (1)
  1. SULFATRIM PEDIATRIC [Suspect]
     Indication: URINARY TRACT INFECTION

REACTIONS (7)
  - OCULAR ICTERUS [None]
  - PYREXIA [None]
  - DECREASED APPETITE [None]
  - JAUNDICE [None]
  - NAUSEA [None]
  - HEPATIC STEATOSIS [None]
  - HEPATOTOXICITY [None]
